FAERS Safety Report 10028572 (Version 1)
Quarter: 2014Q1

REPORT INFORMATION
  Report Type: Spontaneous
  Country: BR (occurrence: BR)
  Receive Date: 20140321
  Receipt Date: 20140321
  Transmission Date: 20141002
  Serious: Yes (Hospitalization, Other)
  Sender: FDA-Public Use
  Company Number: BR-PFIZER INC-2014079007

PATIENT
  Age: 64 Year
  Sex: Female

DRUGS (4)
  1. LYRICA [Suspect]
     Dosage: 75MG PER DAY
     Route: 048
     Dates: end: 201401
  2. LYRICA [Suspect]
     Dosage: 75 MG, 2X/DAY (EVERY 12 HOURS)
     Route: 048
     Dates: start: 201401
  3. ARTOGLICO [Concomitant]
  4. ETNA [Concomitant]

REACTIONS (8)
  - Monoplegia [Unknown]
  - Hypoaesthesia [Unknown]
  - Diabetes mellitus [Unknown]
  - Paralysis [Unknown]
  - Neuropathy peripheral [Unknown]
  - Osteoarthritis [Unknown]
  - Formication [Recovering/Resolving]
  - Impaired work ability [Unknown]
